FAERS Safety Report 23176534 (Version 1)
Quarter: 2023Q4

REPORT INFORMATION
  Report Type: Spontaneous
  Country: CN (occurrence: CN)
  Receive Date: 20231113
  Receipt Date: 20231113
  Transmission Date: 20240109
  Serious: Yes (Other)
  Sender: FDA-Public Use
  Company Number: CN-BAYER-2023A158098

PATIENT
  Age: 72 Year
  Sex: Female

DRUGS (3)
  1. GLUCOBAY [Suspect]
     Active Substance: ACARBOSE
     Indication: Type 2 diabetes mellitus
     Dosage: 50 MG, TID
     Route: 048
     Dates: start: 202310
  2. METFORMIN [Concomitant]
     Active Substance: METFORMIN HYDROCHLORIDE
     Indication: Type 2 diabetes mellitus
     Dosage: 4 DF, QD
     Route: 048
     Dates: end: 202310
  3. METFORMIN [Concomitant]
     Active Substance: METFORMIN HYDROCHLORIDE
     Indication: Type 2 diabetes mellitus
     Dosage: 3 DF, QD
     Route: 048
     Dates: start: 202310

REACTIONS (3)
  - Type 2 diabetes mellitus [None]
  - Drug ineffective [None]
  - Anger [Recovered/Resolved]

NARRATIVE: CASE EVENT DATE: 20231101
